FAERS Safety Report 10365742 (Version 1)
Quarter: 2014Q3

REPORT INFORMATION
  Report Type: Spontaneous
  Country: US (occurrence: US)
  Receive Date: 20140806
  Receipt Date: 20140806
  Transmission Date: 20150326
  Serious: No
  Sender: FDA-Public Use
  Company Number: US-009507513-1407USA011620

PATIENT
  Sex: Male

DRUGS (2)
  1. NASONEX [Suspect]
     Active Substance: MOMETASONE FUROATE
     Indication: DYSPNOEA
     Dosage: DOSE/FREQUENCY: 2 SPRAYS IN EACH NOSTRIL ONCE A DAY
     Dates: start: 2013, end: 2014
  2. SYMBICORT [Concomitant]
     Active Substance: BUDESONIDE\FORMOTEROL FUMARATE DIHYDRATE

REACTIONS (5)
  - Medication residue present [Unknown]
  - Adverse event [Unknown]
  - Hypoaesthesia [Unknown]
  - Skin irritation [Unknown]
  - Grip strength decreased [Unknown]
